FAERS Safety Report 12682516 (Version 2)
Quarter: 2017Q1

REPORT INFORMATION
  Report Type: Report from Study
  Country: US (occurrence: US)
  Receive Date: 20160825
  Receipt Date: 20170320
  Transmission Date: 20170428
  Serious: Yes (Other)
  Sender: FDA-Public Use
  Company Number: US-AMGEN-USASL2016108734

PATIENT
  Age: 59 Year
  Sex: Male

DRUGS (1)
  1. ENBREL [Suspect]
     Active Substance: ETANERCEPT
     Indication: PSORIATIC ARTHROPATHY
     Dosage: 50 MG, WEEKLY
     Route: 065

REACTIONS (12)
  - Musculoskeletal stiffness [Unknown]
  - Skin disorder [Unknown]
  - Wrong technique in product usage process [Unknown]
  - Cough [Unknown]
  - Visual impairment [Not Recovered/Not Resolved]
  - Drug dose omission [Unknown]
  - Paranasal sinus hypersecretion [Unknown]
  - Eye disorder [Unknown]
  - Adverse event [Unknown]
  - Pain [Unknown]
  - Drug effect incomplete [Unknown]
  - Nasopharyngitis [Unknown]
